FAERS Safety Report 8053566-7 (Version None)
Quarter: 2012Q1

REPORT INFORMATION
  Report Type: 
  Country: None (occurrence: None)
  Receive Date: 20120118
  Receipt Date: 20120110
  Transmission Date: 20120608
  Serious: Yes (Hospitalization)
  Sender: FDA-Public Use
  Company Number: FR-MERCK-1110FRA00056

PATIENT
  Age: 82 Year
  Sex: Female

DRUGS (13)
  1. FERROUS SULFATE [Concomitant]
     Route: 065
  2. JANUVIA [Suspect]
     Route: 048
     Dates: end: 20110808
  3. INSULIN GLARGINE [Concomitant]
     Route: 065
  4. FUROSEMIDE [Suspect]
     Route: 048
     Dates: end: 20110808
  5. WARFARIN SODIUM [Concomitant]
     Route: 048
     Dates: end: 20110829
  6. IRBESARTAN [Concomitant]
     Route: 065
  7. SOTALOL HYDROCHLORIDE [Concomitant]
     Route: 065
  8. DONEPEZIL HCL [Suspect]
     Route: 048
     Dates: start: 20100201, end: 20110823
  9. DOMPERIDONE [Concomitant]
     Route: 048
     Dates: start: 20110501, end: 20110829
  10. TIANEPTINE SODIUM [Suspect]
     Route: 048
     Dates: start: 20110601, end: 20110829
  11. ROSUVASTATIN CALCIUM [Concomitant]
     Route: 048
     Dates: end: 20110829
  12. ESOMEPRAZOLE MAGNESIUM [Suspect]
     Route: 048
     Dates: end: 20110829
  13. METFORMIN HCL [Suspect]
     Route: 048
     Dates: end: 20110808

REACTIONS (2)
  - CYTOLYTIC HEPATITIS [None]
  - CHOLELITHIASIS [None]
